FAERS Safety Report 25842776 (Version 1)
Quarter: 2025Q3

REPORT INFORMATION
  Report Type: Spontaneous
  Country: IN (occurrence: IN)
  Receive Date: 20250924
  Receipt Date: 20250924
  Transmission Date: 20251020
  Serious: Yes (Other)
  Sender: SCIEGEN PHARMACEUTICALS INC
  Company Number: IN-SCIEGENP-2025SCLIT00276

PATIENT
  Age: 64 Year
  Sex: Male

DRUGS (1)
  1. DIVALPROEX SODIUM [Suspect]
     Active Substance: DIVALPROEX SODIUM
     Indication: Mania
     Route: 065

REACTIONS (2)
  - Hypothyroidism [Unknown]
  - Therapy partial responder [Unknown]
